FAERS Safety Report 15468102 (Version 1)
Quarter: 2018Q4

REPORT INFORMATION
  Report Type: Spontaneous
  Country: US (occurrence: US)
  Receive Date: 20181005
  Receipt Date: 20181005
  Transmission Date: 20190204
  Serious: No
  Sender: FDA-Public Use
  Company Number: US-HETERO CORPORATE-HET2018US00982

PATIENT
  Sex: Male

DRUGS (3)
  1. LOSARTAN. [Suspect]
     Active Substance: LOSARTAN
     Indication: PRODUCT USED FOR UNKNOWN INDICATION
     Route: 065
  2. VALSARTAN. [Concomitant]
     Active Substance: VALSARTAN
     Indication: PRODUCT USED FOR UNKNOWN INDICATION
     Route: 065
  3. AMLODIPINE [Concomitant]
     Active Substance: AMLODIPINE BESYLATE
     Indication: PRODUCT USED FOR UNKNOWN INDICATION
     Route: 065

REACTIONS (14)
  - Wrong product administered [Unknown]
  - Paraesthesia [Unknown]
  - Oropharyngeal pain [Unknown]
  - Throat irritation [Unknown]
  - Hypoaesthesia [Unknown]
  - Pharyngeal oedema [Unknown]
  - Blood pressure fluctuation [Unknown]
  - Muscle spasms [Unknown]
  - Asthma [Unknown]
  - Hypersensitivity [Unknown]
  - Abdominal pain [Unknown]
  - Dizziness [Unknown]
  - Upper respiratory tract infection [Unknown]
  - Product commingling [Unknown]
